FAERS Safety Report 23113993 (Version 2)
Quarter: 2023Q4

REPORT INFORMATION
  Report Type: Report from Study
  Country: US (occurrence: None)
  Receive Date: 20231027
  Receipt Date: 20231031
  Transmission Date: 20240109
  Serious: No
  Sender: FDA-Public Use
  Company Number: 2023A243566

PATIENT
  Sex: Female

DRUGS (2)
  1. FASENRA [Suspect]
     Active Substance: BENRALIZUMAB
     Indication: Asthma
     Dosage: UNKNOWN
     Route: 058
  2. FASENRA [Concomitant]
     Active Substance: BENRALIZUMAB
     Route: 058

REACTIONS (2)
  - COVID-19 [Unknown]
  - Headache [Unknown]
